FAERS Safety Report 7743661-1 (Version None)
Quarter: 2011Q3

REPORT INFORMATION
  Report Type: 
  Country: None (occurrence: None)
  Receive Date: 20110912
  Receipt Date: 20110902
  Transmission Date: 20111222
  Serious: Yes (Hospitalization, Other)
  Sender: FDA-Public Use
  Company Number: JP-MERCK-1108USA01997

PATIENT
  Age: 70 Year
  Sex: Female
  Weight: 53 kg

DRUGS (13)
  1. WARFARIN [Concomitant]
     Indication: PULMONARY EMBOLISM
     Dosage: DAILY DOSAGE UNKNOWN
     Route: 065
     Dates: start: 20110627
  2. AMARYL [Concomitant]
     Route: 048
     Dates: start: 20110819
  3. OLMESARTAN MEDOXOMIL [Concomitant]
     Indication: HYPERTENSION
     Route: 048
     Dates: start: 20101029
  4. AMARYL [Concomitant]
     Indication: DIABETES MELLITUS
     Route: 048
     Dates: start: 20110630, end: 20110726
  5. SELBEX [Concomitant]
     Dosage: DAILY DOSAGE UNKNOWN
     Route: 065
  6. BEPRICOR [Suspect]
     Indication: ATRIAL FIBRILLATION
     Route: 048
     Dates: start: 20110708, end: 20110725
  7. ADALAT [Concomitant]
     Dosage: DAILY DOSAGE UNKNOW
     Route: 048
  8. AMARYL [Concomitant]
     Route: 048
     Dates: start: 20110806, end: 20110818
  9. MAGNESIUM SULFATE [Concomitant]
     Route: 048
     Dates: start: 20110701
  10. JANUVIA [Suspect]
     Indication: DIABETES MELLITUS
     Route: 048
     Dates: start: 20110708, end: 20110726
  11. ASPENON [Suspect]
     Indication: ATRIAL FIBRILLATION
     Route: 048
     Dates: start: 20110703, end: 20110724
  12. LEVOFLOXACIN [Concomitant]
     Route: 048
     Dates: start: 20110714, end: 20110717
  13. NEO-MERCAZOLE TAB [Concomitant]
     Indication: BASEDOW'S DISEASE
     Dosage: DAILY DOSAGE UNKNOWN
     Route: 048
     Dates: start: 20041201

REACTIONS (4)
  - BLOOD ALKALINE PHOSPHATASE INCREASED [None]
  - LIVER DISORDER [None]
  - ASPARTATE AMINOTRANSFERASE INCREASED [None]
  - ALANINE AMINOTRANSFERASE INCREASED [None]
